FAERS Safety Report 11248175 (Version 2)
Quarter: 2015Q3

REPORT INFORMATION
  Report Type: Spontaneous
  Country: GB (occurrence: GB)
  Receive Date: 20150708
  Receipt Date: 20150904
  Transmission Date: 20151125
  Serious: Yes (Hospitalization, Other)
  Sender: FDA-Public Use
  Company Number: PHFR2015GB004976

PATIENT
  Age: 46 Year
  Sex: Female

DRUGS (9)
  1. CLOZARIL [Suspect]
     Active Substance: CLOZAPINE
     Dosage: 100 MG, UNK
     Route: 048
     Dates: start: 20150522, end: 20150602
  2. CLOZARIL [Suspect]
     Active Substance: CLOZAPINE
     Dosage: 25 MG, UNK
     Route: 048
     Dates: start: 20150618
  3. CLOZARIL [Suspect]
     Active Substance: CLOZAPINE
     Dosage: 50 MG, UNK
     Route: 048
     Dates: start: 20150602, end: 20150618
  4. HALOPERIDOL. [Concomitant]
     Active Substance: HALOPERIDOL
     Indication: BIPOLAR DISORDER
     Dosage: 15 MG, UNK
     Route: 048
     Dates: start: 20131106, end: 20150526
  5. HALOPERIDOL. [Concomitant]
     Active Substance: HALOPERIDOL
     Dosage: 10 MG, UNK
     Dates: start: 20150526
  6. SODIUM VALPROATE [Concomitant]
     Active Substance: VALPROATE SODIUM
     Indication: PRODUCT USED FOR UNKNOWN INDICATION
     Dosage: 200 MG, UNK
     Route: 048
     Dates: start: 20140108
  7. CLOZARIL [Suspect]
     Active Substance: CLOZAPINE
     Dosage: 150 MG, UNK
     Route: 048
     Dates: start: 20131227, end: 20150522
  8. LAMOTRIGINE. [Concomitant]
     Active Substance: LAMOTRIGINE
     Indication: PRODUCT USED FOR UNKNOWN INDICATION
     Dosage: 175 MG, UNK
     Route: 048
     Dates: start: 20130724
  9. CLOZARIL [Suspect]
     Active Substance: CLOZAPINE
     Indication: BIPOLAR DISORDER
     Dosage: UNK
     Route: 048
     Dates: start: 20131028

REACTIONS (22)
  - Postural tremor [Unknown]
  - Gait disturbance [Unknown]
  - Bradykinesia [Unknown]
  - Hyperreflexia [Unknown]
  - General physical health deterioration [Unknown]
  - Fall [Recovered/Resolved]
  - Respiratory failure [Not Recovered/Not Resolved]
  - Electrocardiogram QT prolonged [Unknown]
  - Chronic obstructive pulmonary disease [Unknown]
  - Off label use [Unknown]
  - Masked facies [Unknown]
  - Extrapyramidal disorder [Unknown]
  - Muscle rigidity [Unknown]
  - Subdural haematoma [Recovered/Resolved]
  - Asthma [Not Recovered/Not Resolved]
  - Confusional state [Recovered/Resolved]
  - Parkinsonism [Unknown]
  - Subcutaneous haematoma [Recovered/Resolved]
  - Cognitive disorder [Unknown]
  - Sleep apnoea syndrome [Not Recovered/Not Resolved]
  - Clonus [Unknown]
  - Resting tremor [Unknown]

NARRATIVE: CASE EVENT DATE: 20131028
